FAERS Safety Report 8939808 (Version 2)
Quarter: 2013Q2

REPORT INFORMATION
  Report Type: Report from Study
  Country: US (occurrence: US)
  Receive Date: 20121130
  Receipt Date: 20130403
  Transmission Date: 20140414
  Serious: Yes (Hospitalization, Other)
  Sender: FDA-Public Use
  Company Number: US-ABBOTT-12P-163-1011636-00

PATIENT
  Age: 60 Year
  Sex: Female
  Weight: 65.83 kg

DRUGS (19)
  1. HUMIRA [Suspect]
     Indication: CROHN^S DISEASE
     Dates: start: 20110315
  2. HUMIRA [Suspect]
     Dates: end: 20130319
  3. PREDNISONE [Suspect]
     Indication: CROHN^S DISEASE
  4. GENERIC DEPAKOTE [Concomitant]
     Indication: DEPRESSION
  5. CLONAZEPAM [Concomitant]
     Indication: DEPRESSION
     Route: 048
  6. METROPOLOL ER [Concomitant]
     Indication: HYPERTENSION
  7. DILTIAZEM CD [Concomitant]
     Indication: HYPERTENSION
  8. CLONIDINE [Concomitant]
     Indication: HYPERTENSION
     Route: 048
  9. CLONIDINE [Concomitant]
     Indication: BLOOD PRESSURE
  10. METFORMIN [Concomitant]
     Indication: DIABETES MELLITUS
     Route: 048
  11. BENAZEPRIL [Concomitant]
     Indication: HYPERTENSION
     Dosage: 40 MG DAILY
     Route: 048
  12. BENAZEPRIL [Concomitant]
     Indication: BLOOD PRESSURE
  13. POLYETHYLENE GLYCOL [Concomitant]
     Indication: CONSTIPATION
  14. GLYBURIDE [Concomitant]
     Indication: DIABETES MELLITUS
     Route: 048
  15. DILTIAZEM [Concomitant]
     Indication: BLOOD PRESSURE
     Dosage: 240 MG DAILY
     Route: 048
  16. SERTRALINE [Concomitant]
     Indication: DEPRESSION
     Dosage: 100 MG DAILY
     Route: 048
  17. PREVASTATIN [Concomitant]
     Indication: BLOOD CHOLESTEROL INCREASED
     Dosage: 40 MG DAILY
     Route: 048
  18. ASA [Concomitant]
     Indication: PRODUCT USED FOR UNKNOWN INDICATION
     Dosage: DAILY
     Route: 048
  19. ADULT VITAMINS [Concomitant]
     Indication: PRODUCT USED FOR UNKNOWN INDICATION
     Route: 048

REACTIONS (23)
  - Wrist fracture [Recovered/Resolved]
  - Fall [Recovered/Resolved]
  - Wrist deformity [Recovered/Resolved]
  - Abdominal pain [Recovered/Resolved]
  - Crohn^s disease [Recovered/Resolved]
  - Abdominal distension [Recovered/Resolved]
  - Intestinal perforation [Recovered/Resolved]
  - Abdominal mass [Recovered/Resolved]
  - Intestinal ulcer [Recovered/Resolved]
  - Intestinal resection [Recovered/Resolved]
  - Chest pain [Recovered/Resolved]
  - Gallbladder disorder [Recovered/Resolved]
  - Weight increased [Recovering/Resolving]
  - Fatigue [Unknown]
  - Hypoacusis [Unknown]
  - Visual acuity reduced [Unknown]
  - Mood altered [Unknown]
  - Dizziness [Unknown]
  - Abnormal behaviour [Unknown]
  - Cognitive disorder [Unknown]
  - Communication disorder [Unknown]
  - Tremor [Unknown]
  - Paraesthesia [Unknown]
